FAERS Safety Report 10217632 (Version 2)
Quarter: 2014Q2

REPORT INFORMATION
  Report Type: Report from Study
  Country: ES (occurrence: ES)
  Receive Date: 20140604
  Receipt Date: 20140620
  Transmission Date: 20141212
  Serious: No
  Sender: FDA-Public Use
  Company Number: PHHY2014ES067159

PATIENT
  Age: 25 Year
  Sex: Female

DRUGS (1)
  1. GILENYA [Suspect]
     Indication: MULTIPLE SCLEROSIS
     Dosage: 0.5 MG
     Route: 048
     Dates: start: 201304

REACTIONS (2)
  - Diplopia [Recovering/Resolving]
  - Vision blurred [Recovering/Resolving]
